FAERS Safety Report 6584490-4 (Version None)
Quarter: 2010Q1

REPORT INFORMATION
  Report Type: 
  Country: None (occurrence: None)
  Receive Date: 20100217
  Receipt Date: 20100209
  Transmission Date: 20100710
  Serious: Yes (Death, Other)
  Sender: FDA-Public Use
  Company Number: US-BAYER-201015659GPV

PATIENT
  Age: 60 Year
  Sex: Female

DRUGS (2)
  1. ALEMTUZUMAB [Suspect]
     Indication: T-CELL PROLYMPHOCYTIC LEUKAEMIA
     Dosage: SECOND-LINE TREATMENT
     Route: 065
  2. PENTOSTATIN [Concomitant]
     Indication: T-CELL PROLYMPHOCYTIC LEUKAEMIA
     Dosage: 12 CYCLES, FIRST-LINE TREATMENT
     Route: 065

REACTIONS (9)
  - ABDOMINAL PAIN [None]
  - AMNESIA [None]
  - CONFUSIONAL STATE [None]
  - DIFFUSE LARGE B-CELL LYMPHOMA [None]
  - EPSTEIN-BARR VIRUS ASSOCIATED LYMPHOPROLIFERATIVE DISORDER [None]
  - GASTROINTESTINAL HAEMORRHAGE [None]
  - GASTROINTESTINAL PERFORATION [None]
  - HERPES ZOSTER [None]
  - LYMPHADENOPATHY [None]
